FAERS Safety Report 7740889-1 (Version None)
Quarter: 2011Q3

REPORT INFORMATION
  Report Type: 
  Country: None (occurrence: None)
  Receive Date: 20110909
  Receipt Date: 20110906
  Transmission Date: 20111222
  Serious: Yes (Life-Threatening, Hospitalization, Other)
  Sender: FDA-Public Use
  Company Number: PHHY2011GB79151

PATIENT
  Age: 35 Year
  Sex: Female

DRUGS (4)
  1. LAMOTRIGINE [Suspect]
     Dosage: 50 MG, UNK
  2. PROPRANOLOL [Concomitant]
     Indication: MIGRAINE
     Dosage: 40 MG, TID
  3. VALPROATE SODIUM [Concomitant]
     Indication: MIGRAINE
     Dosage: 400 MG, TID
  4. LAMOTRIGINE [Suspect]
     Indication: COMPLEX PARTIAL SEIZURES
     Dosage: 25 MG, FOR SEVEN DAYS

REACTIONS (16)
  - LEUKOPENIA [None]
  - NAUSEA [None]
  - SEPTIC SHOCK [None]
  - VOMITING [None]
  - RASH ERYTHEMATOUS [None]
  - HYPOCALCAEMIA [None]
  - DIZZINESS [None]
  - HYPOTENSION [None]
  - HYPOMAGNESAEMIA [None]
  - OROPHARYNGEAL PAIN [None]
  - ELECTROLYTE IMBALANCE [None]
  - HYPOXIA [None]
  - HYPOKALAEMIA [None]
  - DRUG RASH WITH EOSINOPHILIA AND SYSTEMIC SYMPTOMS [None]
  - PYREXIA [None]
  - VENTRICULAR FIBRILLATION [None]
